FAERS Safety Report 9053530 (Version 5)
Quarter: 2013Q3

REPORT INFORMATION
  Report Type: Spontaneous
  Country: GB (occurrence: GB)
  Receive Date: 20130208
  Receipt Date: 20130710
  Transmission Date: 20140515
  Serious: Yes (Death, Life-Threatening, Hospitalization, Disabling, Other)
  Sender: FDA-Public Use
  Company Number: PHFR2013GB000873

PATIENT
  Age: 48 Year
  Sex: Male

DRUGS (1)
  1. CLOZARIL [Suspect]
     Indication: SCHIZOPHRENIA
     Dosage: 225 MG, DAILY DOSE
     Route: 048
     Dates: start: 20090622, end: 20120811

REACTIONS (16)
  - Cerebrovascular accident [Fatal]
  - Hemiparesis [Fatal]
  - Aphasia [Fatal]
  - Pancytopenia [Fatal]
  - Neutropenia [Fatal]
  - Haemoglobin decreased [Fatal]
  - White blood cell count decreased [Fatal]
  - Platelet count decreased [Fatal]
  - Leukaemia [Fatal]
  - Hodgkin^s disease [Recovering/Resolving]
  - Ascites [Unknown]
  - Encephalitis [Recovering/Resolving]
  - Jaundice cholestatic [Recovered/Resolved]
  - Aspartate aminotransferase increased [Unknown]
  - Grand mal convulsion [Recovering/Resolving]
  - Lower respiratory tract infection [Unknown]
